FAERS Safety Report 8214375-9 (Version None)
Quarter: 2012Q1

REPORT INFORMATION
  Report Type: 
  Country: None (occurrence: None)
  Receive Date: 20120316
  Receipt Date: 20120305
  Transmission Date: 20120608
  Serious: Yes (Other)
  Sender: FDA-Public Use
  Company Number: JP-JNJFOC-20111008123

PATIENT
  Sex: Male
  Weight: 58 kg

DRUGS (11)
  1. TAMSULOSIN HCL [Concomitant]
     Indication: BENIGN PROSTATIC HYPERPLASIA
     Route: 048
     Dates: start: 20060401
  2. ALFAROL [Concomitant]
     Indication: BENIGN PROSTATIC HYPERPLASIA
     Dosage: DOSE: 1MCG
     Route: 048
     Dates: start: 20090610
  3. FAMOTIDINE [Concomitant]
     Indication: GASTRIC ULCER
     Route: 048
     Dates: start: 20060401
  4. REMICADE [Suspect]
     Indication: COLITIS ULCERATIVE
     Dosage: 5 MG/KG.
     Route: 042
     Dates: start: 20111006
  5. TACROLIMUS [Suspect]
     Indication: PRODUCT USED FOR UNKNOWN INDICATION
     Route: 065
  6. IMURAN [Suspect]
     Indication: COLITIS ULCERATIVE
     Route: 048
     Dates: start: 20080104, end: 20111024
  7. DUTASTERIDE [Concomitant]
     Indication: BENIGN PROSTATIC HYPERPLASIA
     Route: 048
     Dates: start: 20110301
  8. LEVEMIR [Concomitant]
     Indication: DIABETES MELLITUS
     Dosage: DOSE: 4UT.
     Route: 058
     Dates: start: 20101001
  9. HUMALOG [Concomitant]
     Indication: DIABETES MELLITUS
     Dosage: DOSE: 28 UT
     Route: 058
     Dates: start: 20070201
  10. PENTASA [Concomitant]
     Indication: COLITIS ULCERATIVE
     Route: 048
     Dates: start: 20070104
  11. PROGRAF [Concomitant]
     Indication: COLITIS ULCERATIVE
     Route: 048
     Dates: start: 20110901, end: 20111008

REACTIONS (2)
  - PNEUMONIA [None]
  - NEUTROPHIL COUNT DECREASED [None]
